FAERS Safety Report 9519455 (Version 1)
Quarter: 2013Q3

REPORT INFORMATION
  Report Type: Spontaneous
  Country: IT (occurrence: IT)
  Receive Date: 20130912
  Receipt Date: 20130912
  Transmission Date: 20140515
  Serious: Yes (Hospitalization)
  Sender: FDA-Public Use
  Company Number: IT-GLAXOSMITHKLINE-B0922121A

PATIENT
  Age: 80 Year
  Sex: Male

DRUGS (9)
  1. ARIXTRA [Suspect]
     Indication: THROMBOSIS PROPHYLAXIS
     Route: 058
     Dates: start: 20130825
  2. CARDIOASPIRIN [Suspect]
     Indication: THROMBOSIS PROPHYLAXIS
     Dosage: 100MG PER DAY
     Route: 048
     Dates: start: 20130101, end: 20130825
  3. SERTRALINA [Concomitant]
     Route: 048
  4. ALFUZOSINA [Concomitant]
  5. UNKNOWN DRUG [Concomitant]
  6. SINEMET [Concomitant]
     Route: 048
  7. LANSOX [Concomitant]
     Route: 048
  8. AVODART [Concomitant]
     Route: 048
  9. UNKNOWN DRUG [Concomitant]
     Route: 048

REACTIONS (6)
  - Haematemesis [Unknown]
  - Shock haemorrhagic [Unknown]
  - Syncope [Unknown]
  - Weight decreased [Unknown]
  - Decreased appetite [Unknown]
  - Vomiting [Unknown]
